FAERS Safety Report 13581013 (Version 7)
Quarter: 2019Q2

REPORT INFORMATION
  Report Type: Spontaneous
  Country: US (occurrence: US)
  Receive Date: 20170525
  Receipt Date: 20190618
  Transmission Date: 20190711
  Serious: Yes (Other)
  Sender: FDA-Public Use
  Company Number: US-PFIZER INC-2017034343

PATIENT
  Age: 76 Year
  Sex: Female
  Weight: 61.69 kg

DRUGS (5)
  1. TURMERIC CURCUMIN [Concomitant]
     Active Substance: HERBALS\TURMERIC
     Indication: INFLAMMATION
     Dosage: 500 MG, 1X/DAY
     Route: 048
  2. XELJANZ XR [Suspect]
     Active Substance: TOFACITINIB CITRATE
     Indication: INFLAMMATION
     Dosage: 11 MG, 1X/DAY
     Route: 048
  3. VEINEASE [Concomitant]
     Indication: CARDIOVASCULAR DISORDER
     Dosage: UNK
  4. XELJANZ XR [Suspect]
     Active Substance: TOFACITINIB CITRATE
     Dosage: 11 MG, 1X/DAY (11MG ONCE A DAY BY MOUTH IN THE MORNING)
     Route: 048
  5. XELJANZ XR [Suspect]
     Active Substance: TOFACITINIB CITRATE
     Indication: RHEUMATOID ARTHRITIS
     Dosage: 11 MG, 1X/DAY
     Route: 048
     Dates: start: 2015

REACTIONS (8)
  - Hypoacusis [Not Recovered/Not Resolved]
  - Femur fracture [Unknown]
  - Fatigue [Unknown]
  - Urinary tract infection [Unknown]
  - Neck pain [Unknown]
  - Dust allergy [Unknown]
  - Tinnitus [Unknown]
  - Gingivitis [Recovered/Resolved]

NARRATIVE: CASE EVENT DATE: 2016
